FAERS Safety Report 17048274 (Version 3)
Quarter: 2020Q4

REPORT INFORMATION
  Report Type: Spontaneous
  Country: US (occurrence: US)
  Receive Date: 20191119
  Receipt Date: 20201127
  Transmission Date: 20210113
  Serious: Yes (Death, Other)
  Sender: FDA-Public Use
  Company Number: NVSC2019US020688

PATIENT
  Age: 56 Year
  Sex: Female

DRUGS (1)
  1. LUTATHERA [Suspect]
     Active Substance: LUTETIUM OXODOTREOTIDE LU-177
     Indication: PRODUCT USED FOR UNKNOWN INDICATION
     Dosage: UNK
     Route: 065
     Dates: start: 20181118, end: 20181118

REACTIONS (2)
  - Death [Fatal]
  - Condition aggravated [Unknown]

NARRATIVE: CASE EVENT DATE: 20190131
